FAERS Safety Report 8842415 (Version 1)
Quarter: 2012Q4

REPORT INFORMATION
  Report Type: Spontaneous
  Country: US (occurrence: None)
  Receive Date: 20121015
  Receipt Date: 20121015
  Transmission Date: 20130627
  Serious: Yes (Life-Threatening, Hospitalization, Disabling, Other)
  Sender: FDA-Public Use
  Company Number: None

PATIENT
  Age: 23 Year
  Sex: Male
  Weight: 92.99 kg

DRUGS (2)
  1. LEXAPRO [Suspect]
     Indication: PANIC ATTACKS
     Route: 048
     Dates: start: 20091215, end: 20100930
  2. LEXAPRO [Concomitant]

REACTIONS (13)
  - Anxiety [None]
  - Suicidal ideation [None]
  - Loss of libido [None]
  - Sexual dysfunction [None]
  - Depression [None]
  - Withdrawal syndrome [None]
  - Emotional disorder [None]
  - Visual impairment [None]
  - Hearing impaired [None]
  - Restlessness [None]
  - Insomnia [None]
  - Tinnitus [None]
  - Derealisation [None]
